FAERS Safety Report 10026132 (Version 1)
Quarter: 2014Q1

REPORT INFORMATION
  Report Type: Spontaneous
  Country: US (occurrence: US)
  Receive Date: 20140320
  Receipt Date: 20140320
  Transmission Date: 20141002
  Serious: No
  Sender: FDA-Public Use
  Company Number: US-ALLERGAN-1402194US

PATIENT
  Sex: Female

DRUGS (1)
  1. LUMIGAN 0.01% [Suspect]
     Indication: PRODUCT USED FOR UNKNOWN INDICATION
     Route: 047

REACTIONS (4)
  - Hypersensitivity [Unknown]
  - Eyelid exfoliation [Unknown]
  - Eyelid oedema [Unknown]
  - Eye pruritus [Unknown]
